FAERS Safety Report 5533342-7 (Version None)
Quarter: 2007Q4

REPORT INFORMATION
  Report Type: 
  Country: None (occurrence: None)
  Receive Date: 20071129
  Receipt Date: 20071129
  Transmission Date: 20080405
  Serious: Yes (Hospitalization)
  Sender: FDA-Public Use
  Company Number: None

PATIENT
  Sex: Male
  Weight: 109 kg

DRUGS (3)
  1. CISPLATIN [Suspect]
     Dosage: 140 MG
  2. ERBITUX [Suspect]
     Dosage: 1733 MG
  3. CAMPTOSAR [Suspect]
     Dosage: 226 MG

REACTIONS (3)
  - CHEST DISCOMFORT [None]
  - DISEASE PROGRESSION [None]
  - PULMONARY EMBOLISM [None]
